FAERS Safety Report 6620502-7 (Version None)
Quarter: 2010Q1

REPORT INFORMATION
  Report Type: 
  Country: None (occurrence: None)
  Receive Date: 20100309
  Receipt Date: 20100303
  Transmission Date: 20100710
  Serious: Yes (Other)
  Sender: FDA-Public Use
  Company Number: JP-BAYER-201011089BYL

PATIENT
  Age: 70 Year
  Sex: Male
  Weight: 65 kg

DRUGS (6)
  1. NEXAVAR [Suspect]
     Indication: HEPATIC NEOPLASM MALIGNANT
     Dosage: TOTAL DAILY DOSE: 800 MG  UNIT DOSE: 200 MG
     Route: 048
     Dates: start: 20090818
  2. URSO 250 [Concomitant]
     Indication: CHOLELITHIASIS
     Dosage: SINCE BEFORE ADMINISTRATION
     Route: 048
  3. SUPACAL [Concomitant]
     Indication: CHOLELITHIASIS
     Dosage: SINCE BEFORE ADMINISTRATION
     Route: 048
  4. MYSLEE [Concomitant]
     Indication: INSOMNIA
     Dosage: SINCE BEFORE ADMINISTRATION
     Route: 048
  5. TAKEPRON [Concomitant]
     Indication: REFLUX OESOPHAGITIS
     Dosage: SINCE BEFORE ADMINISTRATION
     Route: 048
  6. KARY UNI [Concomitant]
     Dosage: SINCE BEFORE ADMINISTRATION
     Route: 031

REACTIONS (9)
  - DEAFNESS UNILATERAL [None]
  - DECREASED APPETITE [None]
  - DIARRHOEA [None]
  - FAECES HARD [None]
  - HEPATIC FUNCTION ABNORMAL [None]
  - HYPERAMYLASAEMIA [None]
  - HYPERTENSION [None]
  - PALMAR-PLANTAR ERYTHRODYSAESTHESIA SYNDROME [None]
  - PLATELET COUNT DECREASED [None]
